FAERS Safety Report 7630738-4 (Version None)
Quarter: 2011Q3

REPORT INFORMATION
  Report Type: 
  Country: None (occurrence: None)
  Receive Date: 20110722
  Receipt Date: 20110720
  Transmission Date: 20111222
  Serious: Yes (Hospitalization, Other)
  Sender: FDA-Public Use
  Company Number: US-MERCK-0908USA03740

PATIENT
  Age: 80 Year
  Sex: Female
  Weight: 60 kg

DRUGS (4)
  1. FOSAMAX [Suspect]
     Indication: MENOPAUSE
     Route: 048
     Dates: start: 20010101, end: 20060101
  2. FOSAMAX [Suspect]
     Indication: OSTEOPOROSIS
     Route: 048
     Dates: start: 20010101, end: 20060101
  3. FOSAMAX [Suspect]
     Route: 048
     Dates: start: 19990101, end: 20010101
  4. FOSAMAX [Suspect]
     Route: 048
     Dates: start: 19990101, end: 20010101

REACTIONS (34)
  - FRACTURE [None]
  - VULVOVAGINAL PRURITUS [None]
  - TOOTH FRACTURE [None]
  - ENTEROCELE [None]
  - BODY HEIGHT DECREASED [None]
  - ALCOHOLISM [None]
  - HAEMATOCRIT DECREASED [None]
  - BLADDER PROLAPSE [None]
  - DIARRHOEA [None]
  - URINARY TRACT DISORDER [None]
  - OSTEONECROSIS OF JAW [None]
  - BLADDER DILATATION [None]
  - ARTHRALGIA [None]
  - DENTAL CARIES [None]
  - CALCIUM DEFICIENCY [None]
  - ABDOMINAL PAIN LOWER [None]
  - GINGIVAL BLEEDING [None]
  - BLOOD CHOLESTEROL INCREASED [None]
  - DIZZINESS [None]
  - FALL [None]
  - ORAL INFECTION [None]
  - MASTICATION DISORDER [None]
  - HAEMATOCHEZIA [None]
  - TOOTH DISORDER [None]
  - BREAST DISORDER [None]
  - RECTOCELE [None]
  - IMPAIRED HEALING [None]
  - POLLAKIURIA [None]
  - SPINAL COLUMN STENOSIS [None]
  - HIP FRACTURE [None]
  - BONE LOSS [None]
  - ORAL DISCOMFORT [None]
  - NORMOCHROMIC NORMOCYTIC ANAEMIA [None]
  - DIVERTICULUM [None]
